FAERS Safety Report 6843945-5 (Version None)
Quarter: 2010Q3

REPORT INFORMATION
  Report Type: 
  Country: None (occurrence: None)
  Receive Date: 20100714
  Receipt Date: 20100714
  Transmission Date: 20110219
  Serious: Yes (Hospitalization)
  Sender: FDA-Public Use
  Company Number: None

PATIENT
  Age: 74 Year
  Sex: Female
  Weight: 60 kg

DRUGS (10)
  1. PHENYTOIN [Suspect]
     Indication: CONVULSION
     Dosage: 100 MG TID PO, PRIOR TO ADMIT
     Route: 048
  2. MEPROBAMATE [Concomitant]
  3. ALBUTEROL/IPRATROPIUM NEBULIZER [Concomitant]
  4. OLANZAPINE [Concomitant]
  5. ASPIRIN [Concomitant]
  6. LEVOTHYROXINE SODIUM [Concomitant]
  7. TRAVOPROST [Concomitant]
  8. SENNA [Concomitant]
  9. VITAMIN D [Concomitant]
  10. CLOTRIMAZOLE [Concomitant]

REACTIONS (4)
  - BLOOD ALBUMIN DECREASED [None]
  - COMPRESSION FRACTURE [None]
  - FALL [None]
  - THORACIC VERTEBRAL FRACTURE [None]
